FAERS Safety Report 24330800 (Version 1)
Quarter: 2024Q3

REPORT INFORMATION
  Report Type: Spontaneous
  Country: PH (occurrence: PH)
  Receive Date: 20240918
  Receipt Date: 20240918
  Transmission Date: 20241016
  Serious: Yes (Death, Other)
  Sender: STRIDES
  Company Number: PH-STRIDES ARCOLAB LIMITED-2024SP011920

PATIENT
  Age: 33 Year
  Sex: Female

DRUGS (8)
  1. ETOPOSIDE [Suspect]
     Active Substance: ETOPOSIDE
     Indication: Follicular dendritic cell sarcoma
     Dosage: 100 MILLIGRAM/SQ. METER, CYCLICAL (FOR 5 DAYS ON EVERY 21 DAYS)
     Route: 065
  2. DOXORUBICIN [Suspect]
     Active Substance: DOXORUBICIN
     Indication: Follicular dendritic cell sarcoma
     Dosage: 60 MILLIGRAM/SQ. METER (EVERY 21 DAYS) (SINGLE AGENT)
     Route: 065
  3. GEMCITABINE [Suspect]
     Active Substance: GEMCITABINE
     Indication: Follicular dendritic cell sarcoma
     Dosage: 900 MILLIGRAM/SQ. METER, CYCLICAL (ADMINISTERED ON DAYS 1 AND 8)
     Route: 065
  4. DOCETAXEL [Suspect]
     Active Substance: DOCETAXEL\DOCETAXEL ANHYDROUS
     Indication: Follicular dendritic cell sarcoma
     Dosage: 100 MILLIGRAM/SQ. METER, CYCLICAL (ADMINISTERED DAY 8 OF A 21?DAY CYCLE)
     Route: 065
  5. IFOSFAMIDE [Suspect]
     Active Substance: IFOSFAMIDE
     Indication: Follicular dendritic cell sarcoma
     Dosage: 3.5 GRAM PER SQUARE METRE, CYCLICAL FOR EVERY DAYS
     Route: 065
  6. BENDAMUSTINE [Suspect]
     Active Substance: BENDAMUSTINE
     Indication: Follicular dendritic cell sarcoma
     Dosage: 70 MILLIGRAM/SQ. METER EVERY 28 DAYS
     Route: 065
  7. ERYTHROPOIETIN [Suspect]
     Active Substance: ERYTHROPOIETIN
     Indication: Anaemia
     Dosage: UNK
     Route: 065
  8. FILGRASTIM [Suspect]
     Active Substance: FILGRASTIM
     Indication: Leukopenia
     Dosage: UNK
     Route: 065

REACTIONS (6)
  - Cardiac failure [Fatal]
  - Pulmonary embolism [Fatal]
  - Staphylococcal sepsis [Fatal]
  - Septic shock [Fatal]
  - Drug ineffective for unapproved indication [Unknown]
  - Malignant neoplasm progression [Unknown]
